FAERS Safety Report 10713343 (Version 2)
Quarter: 2015Q1

REPORT INFORMATION
  Report Type: Spontaneous
  Country: BR (occurrence: BR)
  Receive Date: 20150115
  Receipt Date: 20150202
  Transmission Date: 20150721
  Serious: Yes (Other)
  Sender: FDA-Public Use
  Company Number: BR-SA-2015SA004538

PATIENT

DRUGS (1)
  1. ENOXAPARIN SODIUM. [Suspect]
     Active Substance: ENOXAPARIN SODIUM
     Indication: PROPHYLAXIS
     Dosage: 1 SYRINGE AT THE SURGICAL CENTER; SYRINGE
     Route: 058

REACTIONS (4)
  - Injection site reaction [Recovering/Resolving]
  - Injection site oedema [Recovering/Resolving]
  - Injection site induration [Recovering/Resolving]
  - Cellulitis [Recovering/Resolving]
